FAERS Safety Report 22179431 (Version 1)
Quarter: 2023Q2

REPORT INFORMATION
  Report Type: Spontaneous
  Country: US (occurrence: US)
  Receive Date: 20230406
  Receipt Date: 20230406
  Transmission Date: 20230721
  Serious: No
  Sender: FDA-Public Use
  Company Number: US-BIOVITRUM-2023-US-006376

PATIENT
  Age: 56 Year
  Sex: Male

DRUGS (1)
  1. KINERET [Suspect]
     Active Substance: ANAKINRA
     Indication: Gouty tophus
     Route: 058
     Dates: start: 20220628

REACTIONS (5)
  - Gouty tophus [Unknown]
  - Condition aggravated [Unknown]
  - Blood pressure fluctuation [Unknown]
  - Hypertension [Unknown]
  - Intentional product misuse [Not Recovered/Not Resolved]
